FAERS Safety Report 25157549 (Version 1)
Quarter: 2025Q2

REPORT INFORMATION
  Report Type: Spontaneous
  Country: US (occurrence: US)
  Receive Date: 20250403
  Receipt Date: 20250403
  Transmission Date: 20250716
  Serious: Yes (Death)
  Sender: TAIHO ONCOLOGY INC
  Company Number: US-TAIHOP-2025-003452

PATIENT
  Sex: Male

DRUGS (1)
  1. LONSURF [Suspect]
     Active Substance: TIPIRACIL HYDROCHLORIDE\TRIFLURIDINE
     Indication: Colorectal cancer
     Route: 048
     Dates: start: 20250113

REACTIONS (2)
  - Death [Fatal]
  - Underdose [Unknown]
